FAERS Safety Report 18159900 (Version 1)
Quarter: 2020Q3

REPORT INFORMATION
  Report Type: Spontaneous
  Country: US (occurrence: US)
  Receive Date: 20200818
  Receipt Date: 20200818
  Transmission Date: 20201103
  Serious: No
  Sender: FDA-Public Use
  Company Number: US-CELLTRION INC.-2020US024732

PATIENT

DRUGS (5)
  1. TRUXIMA [Suspect]
     Active Substance: RITUXIMAB-ABBS
     Indication: NON-HODGKIN^S LYMPHOMA
     Dosage: 1 VIAL OF 500 MG AND 4 VIALS OF 100 MG TOTAL OF 900 MG (FIRST INFUSION CYCLE)
     Route: 065
     Dates: start: 20200708, end: 20200709
  2. TRUXIMA [Suspect]
     Active Substance: RITUXIMAB-ABBS
     Dosage: FIRST INFUSION CYCLE
     Dates: start: 20200715
  3. TRUXIMA [Suspect]
     Active Substance: RITUXIMAB-ABBS
     Indication: SQUAMOUS CELL CARCINOMA OF SKIN
     Dosage: 4 VIALS OF 100 MG AND 1 VIAL OF 500 MG TOTAL OF 900 MG (FIRST INFUSION CYCLE)
     Route: 065
     Dates: start: 20200708, end: 20200709
  4. TRUXIMA [Suspect]
     Active Substance: RITUXIMAB-ABBS
     Dosage: FIRST INFUSION CYCLE
     Dates: start: 20200722
  5. TRUXIMA [Suspect]
     Active Substance: RITUXIMAB-ABBS
     Dosage: FIRST INFUSION CYCLE
     Dates: start: 20200729

REACTIONS (4)
  - Chills [Recovered/Resolved]
  - Off label use [Unknown]
  - Underdose [Unknown]
  - Feeling cold [Recovered/Resolved]
